FAERS Safety Report 5390222-8 (Version None)
Quarter: 2007Q3

REPORT INFORMATION
  Report Type: 
  Country: None (occurrence: None)
  Receive Date: 20070718
  Receipt Date: 20070710
  Transmission Date: 20080115
  Serious: Yes (Other)
  Sender: FDA-Public Use
  Company Number: BR-ROCHE-506913

PATIENT
  Age: 24 Year
  Sex: Female
  Weight: 57 kg

DRUGS (3)
  1. ISOTRETINOIN [Suspect]
     Indication: ACNE
     Dosage: THERAPY STARTED ON UNKNOWN DATE IN 2007.
     Route: 048
     Dates: end: 20070525
  2. ISOTRETINOIN [Suspect]
     Dosage: PREVIOUS ROACCUTANE TREATMENT
     Route: 048
  3. DIANE [Concomitant]
     Indication: CONTRACEPTION
     Dosage: REPORTED MANUFACTURED BY SCHERING
     Route: 048
     Dates: start: 20040101, end: 20070601

REACTIONS (3)
  - DRUG EXPOSURE DURING PREGNANCY [None]
  - NO ADVERSE REACTION [None]
  - PREGNANCY [None]
